FAERS Safety Report 23602676 (Version 1)
Quarter: 2024Q1

REPORT INFORMATION
  Report Type: Spontaneous
  Country: MY (occurrence: MY)
  Receive Date: 20240306
  Receipt Date: 20240306
  Transmission Date: 20240410
  Serious: Yes (Hospitalization)
  Sender: FDA-Public Use
  Company Number: MY-Eisai-EC-2024-160714

PATIENT
  Age: 55 Year
  Sex: Female

DRUGS (1)
  1. DAYVIGO [Suspect]
     Active Substance: LEMBOREXANT
     Indication: Middle insomnia
     Route: 048

REACTIONS (1)
  - Gastritis [Recovered/Resolved]
